FAERS Safety Report 18545655 (Version 2)
Quarter: 2020Q4

REPORT INFORMATION
  Report Type: Spontaneous
  Country: IT (occurrence: IT)
  Receive Date: 20201125
  Receipt Date: 20201216
  Transmission Date: 20210114
  Serious: Yes (Life-Threatening)
  Sender: FDA-Public Use
  Company Number: IT-TEVA-2020-IT-1851674

PATIENT
  Age: 80 Year
  Sex: Male
  Weight: 50 kg

DRUGS (2)
  1. PLAQUENIL [Suspect]
     Active Substance: HYDROXYCHLOROQUINE SULFATE
     Indication: CORONAVIRUS INFECTION
     Dosage: OFF LABEL
     Dates: start: 20200929, end: 20201021
  2. CLARITHROMYCIN. [Suspect]
     Active Substance: CLARITHROMYCIN
     Indication: CORONAVIRUS INFECTION
     Dosage: 1000 MG
     Route: 048
     Dates: start: 20200929, end: 20201010

REACTIONS (3)
  - Urticaria [Recovered/Resolved]
  - Off label use [Recovered/Resolved]
  - Rash pruritic [Recovered/Resolved]

NARRATIVE: CASE EVENT DATE: 20201021
